FAERS Safety Report 14987634 (Version 1)
Quarter: 2018Q2

REPORT INFORMATION
  Report Type: Report from Study
  Country: DE (occurrence: DE)
  Receive Date: 20180608
  Receipt Date: 20180608
  Transmission Date: 20180711
  Serious: Yes (Hospitalization)
  Sender: FDA-Public Use
  Company Number: DE-CELGENEUS-DEU-20180600687

PATIENT
  Age: 67 Year
  Sex: Female

DRUGS (9)
  1. NIVOLUMAB [Concomitant]
     Active Substance: NIVOLUMAB
     Dosage: 3RD CYCLE  TO 10TH CYCLE (DOSE REDUCTION TO 100 MG)
     Route: 065
     Dates: start: 20170329, end: 201707
  2. NIVOLUMAB [Concomitant]
     Active Substance: NIVOLUMAB
     Dosage: 100 MG ABSOLUTE-  12TH CYCLE
     Route: 065
     Dates: start: 20171102, end: 201711
  3. NIVOLUMAB [Concomitant]
     Active Substance: NIVOLUMAB
     Indication: PRODUCT USED FOR UNKNOWN INDICATION
     Dosage: 1ST CYCLE
     Route: 065
     Dates: start: 20170224
  4. ABRAXANE [Suspect]
     Active Substance: PACLITAXEL
     Indication: OFF LABEL USE
     Dosage: 4 CYCLES
     Route: 041
     Dates: start: 201611, end: 201701
  5. NIVOLUMAB [Concomitant]
     Active Substance: NIVOLUMAB
     Dosage: 2 ND CYCLE (DOSE REDUCTION TO 40 MG)
     Route: 065
     Dates: start: 20170314
  6. NIVOLUMAB [Concomitant]
     Active Substance: NIVOLUMAB
     Dosage: 50 MG ABSOLUTE-  11TH CYCLE
     Route: 065
     Dates: start: 2017, end: 20171025
  7. NIVOLUMAB [Concomitant]
     Active Substance: NIVOLUMAB
     Dosage: 100 MG ABSOLUTE-  13TH CYCLE
     Route: 065
     Dates: start: 20171113
  8. ABRAXANE [Suspect]
     Active Substance: PACLITAXEL
     Indication: OVARIAN CANCER
     Dosage: 100 MILLIGRAM/SQ. METER
     Route: 041
     Dates: start: 20161023, end: 2016
  9. CAELYX [Concomitant]
     Active Substance: DOXORUBICIN HYDROCHLORIDE
     Indication: PRODUCT USED FOR UNKNOWN INDICATION
     Route: 065
     Dates: start: 20170131

REACTIONS (3)
  - Confusional state [Unknown]
  - Cardiovascular disorder [Unknown]
  - Pyrexia [Unknown]

NARRATIVE: CASE EVENT DATE: 20170206
